FAERS Safety Report 7730232-6 (Version None)
Quarter: 2011Q3

REPORT INFORMATION
  Report Type: 
  Country: None (occurrence: None)
  Receive Date: 20110906
  Receipt Date: 20110830
  Transmission Date: 20111222
  Serious: Yes (Death, Hospitalization, Disabling)
  Sender: FDA-Public Use
  Company Number: JP-ROCHE-800243

PATIENT
  Sex: Male
  Weight: 65 kg

DRUGS (8)
  1. AVASTIN [Suspect]
     Indication: COLON CANCER METASTATIC
     Route: 041
     Dates: start: 20090625, end: 20090709
  2. CANDESARTAN CILEXETIL [Concomitant]
     Route: 048
  3. ISOVORIN [Concomitant]
     Route: 041
     Dates: start: 20090625, end: 20090709
  4. OXALIPLATIN [Concomitant]
     Route: 041
     Dates: start: 20090625, end: 20090709
  5. EFUDEX [Concomitant]
     Route: 041
     Dates: start: 20090625, end: 20090701
  6. DECADRON [Concomitant]
     Route: 048
     Dates: start: 20090711, end: 20090712
  7. EFUDEX [Concomitant]
     Route: 040
     Dates: start: 20090625, end: 20090709
  8. GRANISETRON [Concomitant]
     Route: 048
     Dates: start: 20090711, end: 20090713

REACTIONS (2)
  - CEREBRAL INFARCTION [None]
  - DISEASE PROGRESSION [None]
